FAERS Safety Report 25327257 (Version 2)
Quarter: 2025Q3

REPORT INFORMATION
  Report Type: Spontaneous
  Country: BR (occurrence: BR)
  Receive Date: 20250517
  Receipt Date: 20250803
  Transmission Date: 20251020
  Serious: Yes (Other)
  Sender: ALEXION PHARMACEUTICALS
  Company Number: BR-AstraZeneca-CH-00869002A

PATIENT
  Sex: Female

DRUGS (2)
  1. DAPAGLIFLOZIN [Suspect]
     Active Substance: DAPAGLIFLOZIN
     Indication: Cardiac failure
     Dosage: 10 MILLIGRAM, BID, 1 TABLET IN THE MORNING AND 1 AT NIGHT
     Route: 065
     Dates: start: 20250512
  2. DAPAGLIFLOZIN [Suspect]
     Active Substance: DAPAGLIFLOZIN
     Dosage: 10 MILLIGRAM, BID, 1 TABLET IN THE MORNING AND 1 AT NIGHT
     Route: 065
     Dates: start: 202412, end: 202504

REACTIONS (4)
  - Diplegia [Unknown]
  - Cough [Unknown]
  - Fatigue [Unknown]
  - Dyskinesia [Unknown]
